FAERS Safety Report 7310624-X (Version None)
Quarter: 2011Q1

REPORT INFORMATION
  Report Type: 
  Country: None (occurrence: None)
  Receive Date: 20110224
  Receipt Date: 20100609
  Transmission Date: 20110831
  Serious: No
  Sender: FDA-Public Use
  Company Number: US-BRISTOL-MYERS SQUIBB COMPANY-15103070

PATIENT
  Age: 67 Year
  Sex: Male

DRUGS (1)
  1. METFORMIN HCL [Suspect]
     Indication: TYPE 2 DIABETES MELLITUS
     Route: 048
     Dates: start: 20070504

REACTIONS (6)
  - TOOTH LOSS [None]
  - PRURITUS [None]
  - DIABETES MELLITUS INADEQUATE CONTROL [None]
  - BACK PAIN [None]
  - RENAL PAIN [None]
  - ABDOMINAL PAIN [None]
